FAERS Safety Report 15150790 (Version 4)
Quarter: 2018Q3

REPORT INFORMATION
  Report Type: Report from Study
  Country: US (occurrence: US)
  Receive Date: 20180716
  Receipt Date: 20180906
  Transmission Date: 20181010
  Serious: Yes (Other)
  Sender: FDA-Public Use
  Company Number: US-CLOVIS ONCOLOGY-CLO-2018-000799

PATIENT
  Age: 67 Year
  Sex: Female

DRUGS (5)
  1. OXALIPLATIN. [Concomitant]
     Active Substance: OXALIPLATIN
     Indication: PRODUCT USED FOR UNKNOWN INDICATION
  2. GEMZAR [Concomitant]
     Active Substance: GEMCITABINE HYDROCHLORIDE
     Indication: PRODUCT USED FOR UNKNOWN INDICATION
  3. RUBRACA [Suspect]
     Active Substance: RUCAPARIB CAMSYLATE
     Dosage: 600 MG, BID
     Route: 048
     Dates: start: 20180726, end: 20180801
  4. RUBRACA [Suspect]
     Active Substance: RUCAPARIB CAMSYLATE
     Indication: OVARIAN CANCER
     Dosage: 600 MG, BID
     Route: 048
     Dates: start: 20180626, end: 20180719
  5. RUBRACA [Suspect]
     Active Substance: RUCAPARIB CAMSYLATE
     Dosage: 500 MG, BID
     Route: 048
     Dates: start: 20180801

REACTIONS (20)
  - Decreased appetite [Unknown]
  - Anxiety [Unknown]
  - Dyspnoea exertional [Unknown]
  - Asthenia [Unknown]
  - Hypersomnia [Not Recovered/Not Resolved]
  - Exercise tolerance decreased [Unknown]
  - Drug dose omission [Unknown]
  - Nausea [Recovering/Resolving]
  - Anaemia [Unknown]
  - Bone marrow failure [Unknown]
  - Neutropenia [Recovering/Resolving]
  - Dysarthria [Unknown]
  - Weight decreased [Unknown]
  - Fatigue [Not Recovered/Not Resolved]
  - Constipation [Unknown]
  - Thrombocytopenia [Unknown]
  - Dyskinesia [Unknown]
  - Vomiting [Not Recovered/Not Resolved]
  - Depression [Unknown]
  - Diarrhoea [Unknown]

NARRATIVE: CASE EVENT DATE: 2018
